FAERS Safety Report 8102446-7 (Version None)
Quarter: 2011Q4

REPORT INFORMATION
  Report Type: 
  Country: None (occurrence: None)
  Receive Date: 20111222
  Receipt Date: 20110928
  Transmission Date: 20120403
  Serious: Yes (Hospitalization)
  Sender: FDA-Public Use
  Company Number: UTC-010088

PATIENT
  Age: 57 Year
  Sex: Male
  Weight: 120 kg

DRUGS (6)
  1. TYVASO [Suspect]
     Indication: EMBOLISM ARTERIAL
     Dosage: 216 MCG (54 MCG, 4 IN 1 D), INHALATION
     Route: 055
     Dates: start: 20090902
  2. TYVASO [Suspect]
     Indication: COR PULMONALE CHRONIC
     Dosage: 216 MCG (54 MCG, 4 IN 1 D), INHALATION
     Route: 055
     Dates: start: 20090902
  3. TYVASO [Suspect]
     Indication: PULMONARY EMBOLISM
     Dosage: 216 MCG (54 MCG, 4 IN 1 D), INHALATION
     Route: 055
     Dates: start: 20090902
  4. TYVASO [Suspect]
     Indication: PULMONARY ARTERIAL HYPERTENSION
     Dosage: 216 MCG (54 MCG, 4 IN 1 D), INHALATION
     Route: 055
     Dates: start: 20090902
  5. ADCIRCA (TADALAFIL) (UNKNOWN) [Concomitant]
  6. DIURETICS (DIURETICS) (UNKNOWN) [Concomitant]

REACTIONS (3)
  - SWELLING [None]
  - SEPSIS [None]
  - CONFUSIONAL STATE [None]
